FAERS Safety Report 19612393 (Version 1)
Quarter: 2021Q3

REPORT INFORMATION
  Report Type: Spontaneous
  Country: FR (occurrence: FR)
  Receive Date: 20210727
  Receipt Date: 20210727
  Transmission Date: 20211014
  Serious: Yes (Disabling)
  Sender: FDA-Public Use
  Company Number: FR-TEVA-2021-FR-1937293

PATIENT
  Sex: Female
  Weight: 63 kg

DRUGS (2)
  1. ESTRADIOL. [Suspect]
     Active Substance: ESTRADIOL
     Indication: MENOPAUSE
     Dosage: UNKNOWN
     Route: 003
     Dates: end: 202008
  2. ANDROCUR [Suspect]
     Active Substance: CYPROTERONE ACETATE
     Indication: ACNE
     Dosage: 1 CP/D 21D/28D
     Route: 048
     Dates: start: 2009, end: 201910

REACTIONS (2)
  - Endometrial hyperplasia [Recovered/Resolved with Sequelae]
  - Meningioma [Not Recovered/Not Resolved]

NARRATIVE: CASE EVENT DATE: 20191010
